FAERS Safety Report 18600914 (Version 1)
Quarter: 2020Q4

REPORT INFORMATION
  Report Type: Spontaneous
  Country: CN (occurrence: CN)
  Receive Date: 20201210
  Receipt Date: 20201210
  Transmission Date: 20210114
  Serious: Yes (Other)
  Sender: FDA-Public Use
  Company Number: CN-PFIZER INC-2020485787

PATIENT
  Age: 65 Year
  Sex: Male

DRUGS (1)
  1. ZYVOX [Suspect]
     Active Substance: LINEZOLID
     Indication: PNEUMONIA
     Dosage: 0.6 G, 2X/DAY
     Route: 041
     Dates: start: 20200710, end: 20200710

REACTIONS (3)
  - Dyspnoea [Recovered/Resolved]
  - Tachypnoea [Recovered/Resolved]
  - Pallor [Recovered/Resolved]

NARRATIVE: CASE EVENT DATE: 20200710
